FAERS Safety Report 25424685 (Version 1)
Quarter: 2025Q2

REPORT INFORMATION
  Report Type: Spontaneous
  Country: US (occurrence: None)
  Receive Date: 20250611
  Receipt Date: 20250611
  Transmission Date: 20250717
  Serious: Yes (Disabling)
  Sender: FDA-CTU
  Company Number: None

PATIENT
  Age: 48 Year
  Sex: Male
  Weight: 131.85 kg

DRUGS (11)
  1. QUTENZA [Suspect]
     Active Substance: CAPSAICIN
     Indication: Neuropathy peripheral
     Dates: start: 20250606, end: 20250606
  2. MOUNJARO [Concomitant]
     Active Substance: TIRZEPATIDE
  3. ATORVASTATIN [Concomitant]
     Active Substance: ATORVASTATIN
  4. PREGABALIN [Concomitant]
     Active Substance: PREGABALIN
  5. SUNOSI [Concomitant]
     Active Substance: SOLRIAMFETOL
  6. modfinil [Concomitant]
  7. SERTRALINE [Concomitant]
     Active Substance: SERTRALINE HYDROCHLORIDE
  8. ALPHA LIPOIC ACID [Concomitant]
     Active Substance: .ALPHA.-LIPOIC ACID
  9. MAGNESIUM [Concomitant]
     Active Substance: MAGNESIUM
  10. VITAMIN D3 [Concomitant]
     Active Substance: CHOLECALCIFEROL
  11. vitamin b complex supplement [Concomitant]

REACTIONS (3)
  - Emotional distress [None]
  - Adverse drug reaction [None]
  - Skin burning sensation [None]

NARRATIVE: CASE EVENT DATE: 20250606
